FAERS Safety Report 9805324 (Version 1)
Quarter: 2014Q1

REPORT INFORMATION
  Report Type: Spontaneous
  Country: US (occurrence: None)
  Receive Date: 20140108
  Receipt Date: 20140108
  Transmission Date: 20141002
  Serious: Yes (Other)
  Sender: FDA-Public Use
  Company Number: None

PATIENT
  Age: 72 Year
  Sex: Female
  Weight: 68.04 kg

DRUGS (6)
  1. LISINOPRIL [Suspect]
     Indication: HYPERTENSION
     Dosage: 90 PILLS
     Route: 048
     Dates: start: 20131101, end: 20131206
  2. MULTI VITAMIN [Concomitant]
  3. COQ 10 [Concomitant]
  4. LYSINE [Concomitant]
  5. GLUCOSAMINE/CHONDROTIN [Concomitant]
  6. COD LIVER OIL [Concomitant]

REACTIONS (6)
  - Product quality issue [None]
  - Malaise [None]
  - Blood pressure increased [None]
  - Gastritis [None]
  - Insomnia [None]
  - Product substitution issue [None]
